FAERS Safety Report 6219579-2 (Version None)
Quarter: 2009Q2

REPORT INFORMATION
  Report Type: 
  Country: None (occurrence: None)
  Receive Date: 20090609
  Receipt Date: 20090528
  Transmission Date: 20091009
  Serious: Yes (Congenital Anomaly)
  Sender: FDA-Public Use
  Company Number: AU-JNJFOC-20070405063

PATIENT
  Sex: Male
  Weight: 3 kg

DRUGS (3)
  1. TOPIRAMATE [Suspect]
     Indication: MATERNAL DRUGS AFFECTING FOETUS
  2. LEVETIRACETAM [Concomitant]
     Indication: DRUG EXPOSURE DURING PREGNANCY
  3. FOLIC ACID [Concomitant]
     Indication: DRUG EXPOSURE DURING PREGNANCY

REACTIONS (2)
  - ATRIAL SEPTAL DEFECT [None]
  - HYDRONEPHROSIS [None]
